FAERS Safety Report 11893517 (Version 2)
Quarter: 2016Q1

REPORT INFORMATION
  Report Type: Not Available
  Country: GB (occurrence: GB)
  Receive Date: 20160106
  Receipt Date: 20160121
  Transmission Date: 20160526
  Serious: Yes (Death, Life-Threatening, Hospitalization)
  Sender: FDA-Public Use
  Company Number: GB-MUNDIPHARMA DS AND PHARMACOVIGILANCE-GBR-2015-0033129

PATIENT
  Age: 95 Year
  Sex: Female

DRUGS (2)
  1. BUTRANS [Suspect]
     Active Substance: BUPRENORPHINE
     Indication: PRODUCT USED FOR UNKNOWN INDICATION
     Dosage: 15 MCG, Q1H
     Route: 062
     Dates: end: 20151108
  2. LISINOPRIL. [Suspect]
     Active Substance: LISINOPRIL
     Indication: PRODUCT USED FOR UNKNOWN INDICATION
     Dosage: UNK
     Route: 048
     Dates: end: 20151108

REACTIONS (5)
  - Contraindicated drug administered [Not Recovered/Not Resolved]
  - Pneumonia [Fatal]
  - Acute kidney injury [Not Recovered/Not Resolved]
  - Toxicity to various agents [Recovered/Resolved]
  - Somnolence [Not Recovered/Not Resolved]

NARRATIVE: CASE EVENT DATE: 20151108
